FAERS Safety Report 20491770 (Version 1)
Quarter: 2022Q1

REPORT INFORMATION
  Report Type: Other
  Country: US (occurrence: None)
  Receive Date: 20220218
  Receipt Date: 20220218
  Transmission Date: 20220424
  Serious: Yes (Death)
  Sender: FDA-Public Use
  Company Number: US-ROCHE-3030974

PATIENT

DRUGS (8)
  1. RITUXIMAB [Suspect]
     Active Substance: RITUXIMAB
     Indication: Diffuse large B-cell lymphoma
     Dosage: STANDARD DOSES ON DAYS 1-5 OF EACH 21-DAY CYCLE
     Route: 042
  2. ETOPOSIDE [Suspect]
     Active Substance: ETOPOSIDE
     Indication: Diffuse large B-cell lymphoma
     Dosage: STANDARD DOSES ON DAYS 1-5 OF EACH 21-DAY CYCLE
     Route: 042
  3. PREDNISONE [Suspect]
     Active Substance: PREDNISONE
     Indication: Diffuse large B-cell lymphoma
     Dosage: STANDARD DOSES ON DAYS 1-5 OF EACH 21-DAY CYCLE
     Route: 048
  4. VINCRISTINE [Suspect]
     Active Substance: VINCRISTINE
     Indication: Diffuse large B-cell lymphoma
     Dosage: STANDARD DOSES ON DAYS 1-5 OF EACH 21-DAY CYCLE
     Route: 042
  5. CYCLOPHOSPHAMIDE [Suspect]
     Active Substance: CYCLOPHOSPHAMIDE
     Indication: Diffuse large B-cell lymphoma
     Dosage: STANDARD DOSES ON DAYS 1-5 OF EACH 21-DAY CYCLE
     Route: 042
  6. DOXORUBICIN [Suspect]
     Active Substance: DOXORUBICIN
     Indication: Diffuse large B-cell lymphoma
     Dosage: STANDARD DOSES ON DAYS 1-5 OF EACH 21-DAY CYCLE
     Route: 042
  7. LENALIDOMIDE [Suspect]
     Active Substance: LENALIDOMIDE
     Indication: Diffuse large B-cell lymphoma
     Dosage: (ESCALATING DOSES: 0 [LEVEL 1], 15 [LEVEL 2], 20 [LEVEL 3], AND 25 [LEVEL 4] MG) ON DAYS 1-7 OF EACH
     Route: 048
  8. PEGFILGRASTIM [Concomitant]
     Active Substance: PEGFILGRASTIM
     Route: 058

REACTIONS (1)
  - Diffuse alveolar damage [Fatal]
